FAERS Safety Report 16006186 (Version 1)
Quarter: 2019Q1

REPORT INFORMATION
  Report Type: Spontaneous
  Country: US (occurrence: US)
  Receive Date: 20190226
  Receipt Date: 20190226
  Transmission Date: 20190418
  Serious: Yes (Hospitalization, Other)
  Sender: FDA-Public Use
  Company Number: US-SAOL THERAPEUTICS-2019SAO00062

PATIENT
  Age: 47 Year
  Sex: Male

DRUGS (1)
  1. BACLOFEN. [Suspect]
     Active Substance: BACLOFEN
     Indication: BLADDER SPASM
     Dosage: 10 MG, 3X/DAY

REACTIONS (3)
  - Drug withdrawal syndrome [Recovered/Resolved]
  - Respiratory failure [Recovered/Resolved]
  - Psychotic disorder [Recovered/Resolved]
